FAERS Safety Report 8687218 (Version 2)
Quarter: 2012Q4

REPORT INFORMATION
  Report Type: 
  Country: US (occurrence: US)
  Receive Date: 20120727
  Receipt Date: 20120912
  Transmission Date: 20130627
  Serious: Yes (Death, Hospitalization, Other)
  Sender: FDA-Public Use
  Company Number: PHEH2012US014552

PATIENT
  Age: 57 None
  Sex: Female

DRUGS (1)
  1. MYFORTIC [Suspect]
     Indication: RENAL TRANSPLANT
     Dosage: 360 mg, BID
     Route: 048

REACTIONS (4)
  - Viral sepsis [Fatal]
  - Chest pain [Unknown]
  - Gangrene [Unknown]
  - Foot amputation [None]
